FAERS Safety Report 8534990-2 (Version None)
Quarter: 2012Q3

REPORT INFORMATION
  Report Type: 
  Country: None (occurrence: None)
  Receive Date: 20120724
  Receipt Date: 20120719
  Transmission Date: 20120928
  Serious: Yes (Hospitalization, Other)
  Sender: FDA-Public Use
  Company Number: FR-PFIZER INC-2012174548

PATIENT
  Age: 60 Year
  Sex: Male

DRUGS (5)
  1. AUGMENTIN '500' [Concomitant]
     Dosage: UNK
     Dates: start: 20120528, end: 20120530
  2. AMOXICILLIN TRIHYDRATE [Suspect]
     Dosage: 3 G, 1X/DAY
     Route: 048
     Dates: start: 20120612, end: 20120612
  3. AMOXICILLIN TRIHYDRATE [Suspect]
     Dosage: 2 G, 1X/DAY
     Route: 048
     Dates: start: 20120613, end: 20120618
  4. NEXIUM [Suspect]
     Dosage: UNK
     Route: 048
     Dates: start: 20120609, end: 20120619
  5. ATORVASTATIN [Suspect]
     Dosage: 40 MG, UNK
     Route: 048
     Dates: start: 20120528, end: 20120621

REACTIONS (5)
  - GAMMA-GLUTAMYLTRANSFERASE INCREASED [None]
  - ALANINE AMINOTRANSFERASE INCREASED [None]
  - CHOLESTASIS [None]
  - ASPARTATE AMINOTRANSFERASE INCREASED [None]
  - SERUM FERRITIN INCREASED [None]
